FAERS Safety Report 20664862 (Version 2)
Quarter: 2022Q2

REPORT INFORMATION
  Report Type: Report from Study
  Country: CA (occurrence: CA)
  Receive Date: 20220401
  Receipt Date: 20220403
  Transmission Date: 20220721
  Serious: Yes (Other)
  Sender: FDA-Public Use
  Company Number: CA-HLS-202107892

PATIENT
  Sex: Female

DRUGS (3)
  1. CLOZARIL [Suspect]
     Active Substance: CLOZAPINE
     Indication: Product used for unknown indication
     Route: 048
     Dates: start: 20210622
  2. CLOZARIL [Suspect]
     Active Substance: CLOZAPINE
     Indication: Product used for unknown indication
     Route: 048
  3. CLOZARIL [Suspect]
     Active Substance: CLOZAPINE
     Indication: Product used for unknown indication
     Dosage: 200 MG QHS
     Route: 048
     Dates: start: 20210616, end: 20210629

REACTIONS (6)
  - Colon cancer [Unknown]
  - C-reactive protein increased [Recovering/Resolving]
  - Troponin increased [Recovering/Resolving]
  - Arthralgia [Unknown]
  - Myocarditis [Unknown]
  - Arthralgia [Unknown]
